FAERS Safety Report 6712078-0 (Version None)
Quarter: 2010Q2

REPORT INFORMATION
  Report Type: 
  Country: None (occurrence: None)
  Receive Date: 20100505
  Receipt Date: 20100423
  Transmission Date: 20101027
  Serious: Yes (Hospitalization, Other)
  Sender: FDA-Public Use
  Company Number: DE-SANOFI-AVENTIS-F01200800156

PATIENT
  Age: 78 Year
  Sex: Male

DRUGS (7)
  1. LEUPROLIDE ACETATE [Suspect]
     Indication: PROSTATE CANCER
     Route: 058
     Dates: start: 20070628, end: 20070628
  2. CASODEX [Suspect]
     Indication: PROSTATE CANCER
     Route: 048
     Dates: start: 20070629, end: 20070728
  3. DIGITOXIN [Concomitant]
     Indication: CARDIAC FAILURE
     Dates: start: 20060901
  4. CALCIUM CARBONATE [Concomitant]
     Indication: OSTEOPOROSIS
     Dates: start: 20070501
  5. HUMAN ACTRAPHANE [Concomitant]
     Indication: DIABETES MELLITUS
     Dates: start: 20070909
  6. PHENPROCOUMON [Concomitant]
     Indication: PROPHYLAXIS
     Dates: start: 20060901
  7. VERAPAMIL [Concomitant]
     Dates: start: 20060901, end: 20060901

REACTIONS (3)
  - CARDIOMYOPATHY [None]
  - CORONARY ARTERY STENOSIS [None]
  - DYSPNOEA [None]
